FAERS Safety Report 8308168 (Version 2)
Quarter: 2012Q4

REPORT INFORMATION
  Report Type: 
  Country: US (occurrence: US)
  Receive Date: 20111222
  Receipt Date: 20120914
  Transmission Date: 20130627
  Serious: Yes (Other)
  Sender: FDA-Public Use
  Company Number: US-GLAXOSMITHKLINE-A0920591A

PATIENT
  Age: 65 Year
  Sex: Female
  Weight: 87.5 kg

DRUGS (1)
  1. VOTRIENT [Suspect]
     Indication: RENAL CANCER
     Dosage: 800MG Per day
     Route: 048
     Dates: start: 201001

REACTIONS (4)
  - Hypothyroidism [Recovering/Resolving]
  - Diarrhoea [Not Recovered/Not Resolved]
  - Fatigue [Recovering/Resolving]
  - Depression [Recovering/Resolving]
